FAERS Safety Report 15937095 (Version 1)
Quarter: 2019Q1

REPORT INFORMATION
  Report Type: Spontaneous
  Country: US (occurrence: US)
  Receive Date: 20190208
  Receipt Date: 20190208
  Transmission Date: 20190417
  Serious: Yes (Death, Hospitalization, Other)
  Sender: FDA-Public Use
  Company Number: US-SA-2019SA033399

PATIENT
  Age: 8 Month
  Sex: Male

DRUGS (12)
  1. RIBAVIRIN. [Concomitant]
     Active Substance: RIBAVIRIN
     Indication: RHINOVIRUS INFECTION
  2. TACROLIMUS. [Suspect]
     Active Substance: TACROLIMUS
     Indication: IMMUNOSUPPRESSANT DRUG THERAPY
  3. RIBAVIRIN. [Concomitant]
     Active Substance: RIBAVIRIN
     Indication: ENTEROVIRUS INFECTION
  4. RITUXIMAB. [Concomitant]
     Active Substance: RITUXIMAB
     Indication: VIRAEMIA
  5. HYDROXYUREA. [Suspect]
     Active Substance: HYDROXYUREA
     Indication: BONE MARROW CONDITIONING REGIMEN
  6. FLUDARABINE PHOSPHATE. [Suspect]
     Active Substance: FLUDARABINE PHOSPHATE
     Indication: BONE MARROW CONDITIONING REGIMEN
  7. CIDOFOVIR. [Concomitant]
     Active Substance: CIDOFOVIR
     Indication: VIRAEMIA
     Dosage: UNK
  8. MYCOPHENOLATE MOFETIL. [Suspect]
     Active Substance: MYCOPHENOLATE MOFETIL
     Indication: IMMUNOSUPPRESSANT DRUG THERAPY
  9. THIOTEPA. [Suspect]
     Active Substance: THIOTEPA
     Indication: BONE MARROW CONDITIONING REGIMEN
  10. ALEMTUZUMAB [Suspect]
     Active Substance: ALEMTUZUMAB
     Indication: BONE MARROW CONDITIONING REGIMEN
  11. MELPHALAN. [Suspect]
     Active Substance: MELPHALAN
     Indication: BONE MARROW CONDITIONING REGIMEN
  12. RIBAVIRIN. [Concomitant]
     Active Substance: RIBAVIRIN
     Indication: PARAINFLUENZAE VIRUS INFECTION
     Dosage: UNK

REACTIONS (15)
  - Immune reconstitution inflammatory syndrome [Unknown]
  - Rhinovirus infection [Unknown]
  - Lower respiratory tract infection viral [Unknown]
  - Escherichia infection [Unknown]
  - Cardio-respiratory arrest [Fatal]
  - Enterococcal infection [Unknown]
  - Candida infection [Unknown]
  - Pyrexia [Unknown]
  - Wheezing [Unknown]
  - Respiratory rate increased [Unknown]
  - Neutropenia [Recovered/Resolved]
  - Off label use [Unknown]
  - Lymphopenia [Recovered/Resolved]
  - Parainfluenzae virus infection [Unknown]
  - Serratia infection [Unknown]
